FAERS Safety Report 26077808 (Version 1)
Quarter: 2025Q4

REPORT INFORMATION
  Report Type: Spontaneous
  Country: US (occurrence: US)
  Receive Date: 20251122
  Receipt Date: 20251122
  Transmission Date: 20260118
  Serious: No
  Sender: MDD OPERATIONS
  Company Number: US-MDD US Operations-MDD202510-004061

PATIENT
  Age: 77 Year
  Sex: Male
  Weight: 90.71 kg

DRUGS (6)
  1. ONAPGO [Suspect]
     Active Substance: APOMORPHINE HYDROCHLORIDE
     Indication: Parkinson^s disease
     Dosage: 1.5 MG CONTINUOUS INFUSION FOR 16 HOURS
     Dates: start: 20250930
  2. ONAPGO [Suspect]
     Active Substance: APOMORPHINE HYDROCHLORIDE
     Dosage: 2MG PER HOUR
  3. ONAPGO [Suspect]
     Active Substance: APOMORPHINE HYDROCHLORIDE
     Dosage: 2.5MG PER HOUR
  4. ONAPGO [Suspect]
     Active Substance: APOMORPHINE HYDROCHLORIDE
     Dosage: 3.0 MG/HOUR
  5. ONAPGO [Suspect]
     Active Substance: APOMORPHINE HYDROCHLORIDE
     Dosage: DOSE INCREASED
     Dates: start: 20251029
  6. CARBIDOPA\LEVODOPA [Concomitant]
     Active Substance: CARBIDOPA\LEVODOPA
     Dosage: NOT PROVIDED

REACTIONS (5)
  - Freezing phenomenon [Not Recovered/Not Resolved]
  - Confusional state [Not Recovered/Not Resolved]
  - Somnolence [Not Recovered/Not Resolved]
  - Infusion site haemorrhage [Recovered/Resolved]
  - Device use error [Unknown]
